FAERS Safety Report 12740121 (Version 2)
Quarter: 2017Q1

REPORT INFORMATION
  Report Type: Report from Study
  Country: CO (occurrence: CO)
  Receive Date: 20160913
  Receipt Date: 20170201
  Transmission Date: 20170428
  Serious: Yes (Death)
  Sender: FDA-Public Use
  Company Number: DE-ACTELION-A-US2016-142153

PATIENT
  Age: 82 Year
  Sex: Female

DRUGS (1)
  1. VENTAVIS [Suspect]
     Active Substance: ILOPROST
     Indication: PULMONARY HYPERTENSION
     Dosage: UNK
     Route: 055
     Dates: start: 20160127

REACTIONS (3)
  - Drug dose omission [Unknown]
  - Fluid retention [Fatal]
  - Device issue [Unknown]

NARRATIVE: CASE EVENT DATE: 20160315
